FAERS Safety Report 7652498-3 (Version None)
Quarter: 2011Q3

REPORT INFORMATION
  Report Type: 
  Country: None (occurrence: None)
  Receive Date: 20110803
  Receipt Date: 20110727
  Transmission Date: 20111222
  Serious: Yes (Other)
  Sender: FDA-Public Use
  Company Number: BR-BAYER-2011-066002

PATIENT
  Age: 30 Year
  Sex: Female

DRUGS (1)
  1. CIPRO XR [Suspect]
     Indication: PRODUCT USED FOR UNKNOWN INDICATION
     Dosage: UNK
     Route: 048
     Dates: start: 20110721, end: 20110724

REACTIONS (3)
  - SWELLING FACE [None]
  - IMMUNE SYSTEM DISORDER [None]
  - SOMNOLENCE [None]
